FAERS Safety Report 7414209-6 (Version None)
Quarter: 2011Q2

REPORT INFORMATION
  Report Type: 
  Country: None (occurrence: None)
  Receive Date: 20110411
  Receipt Date: 20110411
  Transmission Date: 20111010
  Serious: No
  Sender: FDA-Public Use
  Company Number: None

PATIENT
  Age: 44 Year
  Sex: Male

DRUGS (2)
  1. FLOMAX [Suspect]
     Dates: start: 20091109, end: 20091123
  2. SEPTRA [Suspect]
     Dates: start: 20091109, end: 20091123

REACTIONS (11)
  - BLOOD ALKALINE PHOSPHATASE INCREASED [None]
  - LIVER DISORDER [None]
  - ALANINE AMINOTRANSFERASE INCREASED [None]
  - NAUSEA [None]
  - BLOOD BILIRUBIN INCREASED [None]
  - VOMITING [None]
  - PRURITUS [None]
  - ABDOMINAL PAIN [None]
  - JAUNDICE [None]
  - ASPARTATE AMINOTRANSFERASE INCREASED [None]
  - DIARRHOEA [None]
